FAERS Safety Report 7080808-7 (Version None)
Quarter: 2010Q4

REPORT INFORMATION
  Report Type: 
  Country: None (occurrence: None)
  Receive Date: 20101103
  Receipt Date: 20101027
  Transmission Date: 20110411
  Serious: Yes (Other)
  Sender: FDA-Public Use
  Company Number: US-SANOFI-AVENTIS-2010SA065890

PATIENT
  Age: 80 Year
  Sex: Female

DRUGS (3)
  1. LANTUS [Suspect]
     Indication: TYPE 2 DIABETES MELLITUS
     Dosage: DOSE:34 UNIT(S)
     Route: 058
     Dates: start: 20100101
  2. LANTUS [Suspect]
     Route: 058
     Dates: start: 19980101
  3. OPTICLICK [Suspect]
     Indication: TYPE 2 DIABETES MELLITUS
     Dates: start: 19980101

REACTIONS (4)
  - CATARACT [None]
  - DEVICE MALFUNCTION [None]
  - EYE DISORDER [None]
  - PNEUMONIA [None]
